FAERS Safety Report 23845857 (Version 1)
Quarter: 2024Q2

REPORT INFORMATION
  Report Type: Spontaneous
  Country: US (occurrence: US)
  Receive Date: 20240512
  Receipt Date: 20240512
  Transmission Date: 20240716
  Serious: No
  Sender: FDA-Public Use
  Company Number: US-CIPLA LTD.-2023US05218

PATIENT

DRUGS (2)
  1. ALBUTEROL [Suspect]
     Active Substance: ALBUTEROL
     Indication: Asthma
     Dosage: 180 MCG, QID (90 MCG), DOSE (2 PUFFS), FREQUENCY (4 TIMES A DAY)
     Route: 065
  2. ALBUTEROL [Suspect]
     Active Substance: ALBUTEROL
     Dosage: UNK, PATIENT WAS NOT SURE HOW MUCH THE PATIENT TAKES AND MENTIONED THAT IT MIGHT BE 1, 2, 6 OR EVEN
     Route: 065

REACTIONS (5)
  - Illness [Unknown]
  - Asthma [Unknown]
  - Incorrect dose administered [Unknown]
  - Device delivery system issue [Unknown]
  - Product shape issue [Unknown]
